FAERS Safety Report 15990098 (Version 3)
Quarter: 2019Q4

REPORT INFORMATION
  Report Type: Other
  Country: CA (occurrence: CA)
  Receive Date: 20190221
  Receipt Date: 20191008
  Transmission Date: 20200122
  Serious: Yes (Other)
  Sender: FDA-Public Use
  Company Number: CA-PFIZER INC-2019070242

PATIENT

DRUGS (7)
  1. CISPLATIN. [Suspect]
     Active Substance: CISPLATIN
     Indication: MEDULLOBLASTOMA
     Dosage: 3.5 MG/KG, CYCLIC 1 EVERY 21 DAYS
     Route: 042
  2. UROMITEXAN [Suspect]
     Active Substance: MESNA
     Indication: MEDULLOBLASTOMA
     Dosage: UNK, CYCLIC 1 EVERY 21 DAYS
     Route: 065
  3. CARBOPLATIN. [Suspect]
     Active Substance: CARBOPLATIN
     Indication: MEDULLOBLASTOMA
     Dosage: 17 MG/KG, CYCLIC
     Route: 042
  4. PROCYTOX [Suspect]
     Active Substance: CYCLOPHOSPHAMIDE
     Indication: MEDULLOBLASTOMA
     Dosage: 60 MG/KG, CYCLIC 2 EVERY 21 DAYS
     Route: 042
  5. VINCRISTINE SULFATE. [Suspect]
     Active Substance: VINCRISTINE SULFATE
     Indication: MEDULLOBLASTOMA
     Dosage: 0.05 MG/KG, CYCLIC 3 EVERY 21 DAYS
     Route: 042
  6. ETOPOSIDE. [Suspect]
     Active Substance: ETOPOSIDE
     Indication: MEDULLOBLASTOMA
     Dosage: 2.5 MG/KG, CYCLIC 3 EVERY 21 DAYS
     Route: 042
  7. THIOTEPA. [Suspect]
     Active Substance: THIOTEPA
     Indication: MEDULLOBLASTOMA
     Dosage: 10 MG/KG, CYCLIC
     Route: 042

REACTIONS (1)
  - Hypoacusis [Unknown]
